FAERS Safety Report 5266517-5 (Version None)
Quarter: 2007Q1

REPORT INFORMATION
  Report Type: 
  Country: None (occurrence: None)
  Receive Date: 20070315
  Receipt Date: 20070305
  Transmission Date: 20070707
  Serious: Yes (Hospitalization)
  Sender: FDA-Public Use
  Company Number: US-ELI_LILLY_AND_COMPANY-US200611004022

PATIENT
  Age: 68 Year
  Sex: Female

DRUGS (14)
  1. FORTEO [Suspect]
     Indication: OSTEOPOROSIS
     Dosage: 20 UG, DAILY (1/D)
     Dates: start: 20061030
  2. HYDROCHLOROTHIAZIDE [Concomitant]
  3. AVAPRO [Concomitant]
  4. VERAPAMIL [Concomitant]
  5. SYNTHROID [Concomitant]
  6. SPIRA [Concomitant]
  7. DYAZIDE [Concomitant]
  8. ALBUTEROL [Concomitant]
  9. CITRICAL [Concomitant]
  10. ERGOCALCIFEROL (VITAMIN D) [Concomitant]
  11. GLUCOCORTICOIDS [Concomitant]
  12. ASCORBIC ACID [Concomitant]
  13. FOLIC ACID [Concomitant]
  14. ASPIRIN [Concomitant]

REACTIONS (8)
  - COMPRESSION FRACTURE [None]
  - DYSPNOEA [None]
  - INJECTION SITE BRUISING [None]
  - INJECTION SITE ERYTHEMA [None]
  - INJECTION SITE PAIN [None]
  - MOBILITY DECREASED [None]
  - PAIN [None]
  - PULMONARY EMBOLISM [None]
